FAERS Safety Report 10184856 (Version 1)
Quarter: 2014Q2

REPORT INFORMATION
  Report Type: Spontaneous
  Country: US (occurrence: None)
  Receive Date: 20140519
  Receipt Date: 20140519
  Transmission Date: 20141212
  Serious: Yes (Other)
  Sender: FDA-Public Use
  Company Number: 2014P1004135

PATIENT
  Age: 16 Year
  Sex: Female

DRUGS (1)
  1. MYORISAN [Suspect]
     Dates: start: 20140221

REACTIONS (1)
  - Suicidal ideation [None]
